FAERS Safety Report 8449257-0 (Version None)
Quarter: 2012Q2

REPORT INFORMATION
  Report Type: 
  Country: None (occurrence: None)
  Receive Date: 20120619
  Receipt Date: 20120611
  Transmission Date: 20120825
  Serious: Yes (Death)
  Sender: FDA-Public Use
  Company Number: AU-BAXTER-2012BAX008212

PATIENT
  Sex: Female

DRUGS (5)
  1. DIANEAL LOW CALCIUM W/ DEXTROSE 1.5% [Suspect]
     Dates: end: 20120609
  2. DIANEAL LOW CALCIUM W/ DEXTROSE 1.5% [Suspect]
     Indication: PERITONEAL DIALYSIS
     Dates: end: 20120609
  3. DIANEAL LOW CALCIUM W/ DEXTROSE 1.5% [Suspect]
     Dates: end: 20120609
  4. DIANEAL [Suspect]
     Indication: PERITONEAL DIALYSIS
     Route: 033
  5. DIANEAL [Suspect]
     Indication: PERITONEAL DIALYSIS
     Route: 033

REACTIONS (1)
  - DEATH [None]
